FAERS Safety Report 6268451-0 (Version None)
Quarter: 2009Q3

REPORT INFORMATION
  Report Type: 
  Country: None (occurrence: None)
  Receive Date: 20090715
  Receipt Date: 20090702
  Transmission Date: 20100115
  Serious: Yes (Death)
  Sender: FDA-Public Use
  Company Number: PE-PFIZER INC-2009236563

PATIENT
  Age: 87 Year

DRUGS (6)
  1. XALATAN [Suspect]
     Indication: GLAUCOMA
     Dosage: UNK
     Route: 047
     Dates: start: 20031214, end: 20090629
  2. DEFLAZACORT [Concomitant]
  3. LOSARTAN POTASSIUM AND HYDROCHLOROTHIAZIDE [Concomitant]
  4. LANSOPRAZOLE [Concomitant]
  5. ALPRAZOLAM [Concomitant]
  6. SUCRALFATE [Concomitant]

REACTIONS (1)
  - DEATH [None]
